FAERS Safety Report 12463668 (Version 1)
Quarter: 2016Q2

REPORT INFORMATION
  Report Type: Spontaneous
  Country: US (occurrence: US)
  Receive Date: 20160614
  Receipt Date: 20160614
  Transmission Date: 20160815
  Serious: No
  Sender: FDA-Public Use
  Company Number: US-PFIZER INC-2016278597

PATIENT
  Sex: Female

DRUGS (1)
  1. IBRANCE [Suspect]
     Active Substance: PALBOCICLIB
     Dosage: 125 MG, CYCLIC
     Dates: start: 20160505, end: 20160512

REACTIONS (4)
  - Dry mouth [Recovering/Resolving]
  - Ageusia [Recovering/Resolving]
  - Tongue discomfort [Recovering/Resolving]
  - Asthenia [Recovering/Resolving]
